FAERS Safety Report 9931222 (Version 2)
Quarter: 2014Q1

REPORT INFORMATION
  Report Type: Spontaneous
  Country: US (occurrence: US)
  Receive Date: 20140228
  Receipt Date: 20140228
  Transmission Date: 20141002
  Serious: Yes (Death)
  Sender: FDA-Public Use
  Company Number: US-GE HEALTHCARE MEDICAL DIAGNOSTICS-OSCN-PR-0704S-0188

PATIENT
  Age: 72 Year
  Sex: Male

DRUGS (7)
  1. OMNISCAN [Suspect]
     Indication: PRODUCT USED FOR UNKNOWN INDICATION
     Route: 042
     Dates: start: 20020102, end: 20020102
  2. OMNISCAN [Suspect]
     Route: 042
     Dates: start: 20051020, end: 20051020
  3. OMNISCAN [Suspect]
     Route: 042
     Dates: start: 20060426, end: 20060426
  4. OMNISCAN [Suspect]
     Route: 042
     Dates: start: 20060428, end: 20060428
  5. PROHANCE [Suspect]
     Indication: PRODUCT USED FOR UNKNOWN INDICATION
     Route: 042
     Dates: start: 20021118, end: 20021118
  6. OPTIMARK [Suspect]
     Indication: PRODUCT USED FOR UNKNOWN INDICATION
     Route: 042
     Dates: start: 20061026, end: 20061026
  7. ERYTHROPOETIN [Concomitant]

REACTIONS (1)
  - Nephrogenic systemic fibrosis [Fatal]
